FAERS Safety Report 13062677 (Version 2)
Quarter: 2017Q1

REPORT INFORMATION
  Report Type: Report from Study
  Country: US (occurrence: US)
  Receive Date: 20161226
  Receipt Date: 20170120
  Transmission Date: 20170428
  Serious: Yes (Other)
  Sender: FDA-Public Use
  Company Number: PHHO2016US018725

PATIENT
  Age: 60 Year
  Sex: Male
  Weight: 72.4 kg

DRUGS (7)
  1. LISINOPRIL/HYDROCHLOORTHIAZIDE [Concomitant]
     Indication: HYPERTENSION
     Dosage: 45 (20+25) MG, QD
     Route: 048
     Dates: start: 20160504
  2. EMTRICITABINE W/RILPIVIRINE/TENOFOVIR [Concomitant]
     Active Substance: EMTRICITABINE\RILPIVIRINE\TENOFOVIR DISOPROXIL FUMARATE
     Indication: HIV INFECTION
     Dosage: 250 (200+25+25) MG, QD
     Route: 048
     Dates: start: 20160502
  3. ACYCLOVIR. [Concomitant]
     Active Substance: ACYCLOVIR
     Indication: PAPILLOMA VIRAL INFECTION
  4. ACZ885 [Suspect]
     Active Substance: CANAKINUMAB
     Dosage: 150 MG (2X12 WEEKS APART)
     Route: 058
     Dates: start: 20161202, end: 20161202
  5. ACZ885 [Suspect]
     Active Substance: CANAKINUMAB
     Indication: INFLAMMATION
     Dosage: UNK
     Route: 058
  6. ACZ885 [Suspect]
     Active Substance: CANAKINUMAB
     Indication: INFLAMMATION
     Dosage: 150 MG (2X12 WEEKS APART)
     Route: 058
     Dates: start: 20161031, end: 20161031
  7. ACYCLOVIR. [Concomitant]
     Active Substance: ACYCLOVIR
     Indication: HERPES VIRUS INFECTION
     Dosage: 800 MG, QD
     Route: 048
     Dates: start: 20160504

REACTIONS (1)
  - Kaposi^s sarcoma [Recovered/Resolved]

NARRATIVE: CASE EVENT DATE: 20161202
